FAERS Safety Report 16647462 (Version 2)
Quarter: 2019Q3

REPORT INFORMATION
  Report Type: Report from Study
  Country: None (occurrence: TR)
  Receive Date: 20190730
  Receipt Date: 20190830
  Transmission Date: 20191004
  Serious: Yes (Death, Hospitalization)
  Sender: FDA-Public Use
  Company Number: TR-ABBVIE-19K-161-2872280-00

PATIENT
  Sex: Female
  Weight: 98 kg

DRUGS (1)
  1. DUODOPA [Suspect]
     Active Substance: CARBIDOPA\LEVODOPA
     Indication: PARKINSON^S DISEASE
     Dosage: MORNING DOSE (ML): 6.90 CONTINUOUS DOSE (ML): 3.00 EXTRA DOSE (ML): 1.00?20 MG/ML 5 MG/ML
     Route: 050
     Dates: start: 20180918

REACTIONS (1)
  - Pneumonia [Fatal]
